FAERS Safety Report 10279596 (Version 2)
Quarter: 2014Q3

REPORT INFORMATION
  Report Type: Report from Study
  Country: PL (occurrence: PL)
  Receive Date: 20140707
  Receipt Date: 20140707
  Transmission Date: 20150326
  Serious: Yes (Death, Hospitalization)
  Sender: FDA-Public Use
  Company Number: PHHO2007PL13101

PATIENT
  Age: 47 Year
  Sex: Male
  Weight: 77.9 kg

DRUGS (2)
  1. SOM230 [Suspect]
     Active Substance: PASIREOTIDE
     Indication: ACROMEGALY
     Dosage: 900 UG, BID
     Route: 058
     Dates: start: 20070725, end: 20080212
  2. METFORMIN [Concomitant]
     Active Substance: METFORMIN HYDROCHLORIDE

REACTIONS (5)
  - Pulmonary thrombosis [Fatal]
  - Pituitary-dependent Cushing^s syndrome [Fatal]
  - Pneumonia [Fatal]
  - Diabetes mellitus [Recovered/Resolved with Sequelae]
  - Post procedural complication [Fatal]

NARRATIVE: CASE EVENT DATE: 20070806
